FAERS Safety Report 19758823 (Version 2)
Quarter: 2021Q4

REPORT INFORMATION
  Report Type: Report from Study
  Country: FR (occurrence: FR)
  Receive Date: 20210827
  Receipt Date: 20211006
  Transmission Date: 20220303
  Serious: No
  Sender: FDA-Public Use
  Company Number: FR-EXELIXIS-XL18421043578

PATIENT
  Age: 59 Year
  Sex: Male
  Weight: 65 kg

DRUGS (7)
  1. CABOZANTINIB [Suspect]
     Active Substance: CABOZANTINIB
     Indication: Hormone-refractory prostate cancer
     Dosage: 60 MG, QD
     Route: 048
     Dates: start: 20200730
  2. CABOZANTINIB [Suspect]
     Active Substance: CABOZANTINIB
     Dosage: 40 MG, QD
     Route: 048
  3. RAMIPRIL [Concomitant]
     Active Substance: RAMIPRIL
  4. ZOPICLONE [Concomitant]
     Active Substance: ZOPICLONE
  5. SERETIDE [Concomitant]
     Active Substance: FLUTICASONE PROPIONATE\SALMETEROL XINAFOATE
  6. BRICANYL [Concomitant]
     Active Substance: TERBUTALINE SULFATE
  7. LEVOCETIRIZINE DIHYDROCHLORIDE [Concomitant]
     Active Substance: LEVOCETIRIZINE DIHYDROCHLORIDE

REACTIONS (1)
  - Colitis [Recovered/Resolved]

NARRATIVE: CASE EVENT DATE: 20201119
